FAERS Safety Report 14552278 (Version 3)
Quarter: 2018Q2

REPORT INFORMATION
  Report Type: Report from Study
  Country: CZ (occurrence: CZ)
  Receive Date: 20180220
  Receipt Date: 20180410
  Transmission Date: 20180711
  Serious: Yes (Death, Hospitalization, Other)
  Sender: FDA-Public Use
  Company Number: PHHY2017CZ176435

PATIENT
  Age: 12 Year
  Sex: Male
  Weight: 44 kg

DRUGS (6)
  1. TRAMETINIB [Suspect]
     Active Substance: TRAMETINIB
     Indication: METASTATIC MALIGNANT MELANOMA
     Dosage: UNK
     Route: 048
     Dates: start: 20171011
  2. LORISTA [Concomitant]
     Active Substance: LOSARTAN POTASSIUM
     Indication: LEFT VENTRICULAR DYSFUNCTION
     Dosage: 25 MG, QD
     Route: 065
     Dates: start: 20180123, end: 20180129
  3. LORISTA [Concomitant]
     Active Substance: LOSARTAN POTASSIUM
     Dosage: 50 MG, QD
     Route: 065
     Dates: start: 20180130, end: 20180213
  4. ZOLOFT [Concomitant]
     Active Substance: SERTRALINE HYDROCHLORIDE
     Indication: DEPRESSED MOOD
     Dosage: 50 MG, UNK
     Route: 065
     Dates: start: 20171111
  5. EUTHYROX [Concomitant]
     Active Substance: LEVOTHYROXINE SODIUM
     Indication: HYPOTHYROIDISM
     Dosage: 50 UG, UNK
     Route: 065
     Dates: start: 20150407
  6. TRAMETINIB [Suspect]
     Active Substance: TRAMETINIB
     Dosage: 1 MG, QD
     Route: 048
     Dates: start: 20171110, end: 20180204

REACTIONS (16)
  - Cardiac arrest [Fatal]
  - Fall [Unknown]
  - Encephalopathy [Recovered/Resolved]
  - Altered state of consciousness [Recovered/Resolved]
  - Tachycardia [Unknown]
  - Bradycardia [Unknown]
  - Hypotension [Unknown]
  - Femur fracture [Unknown]
  - Fracture displacement [Unknown]
  - Cardiovascular disorder [Unknown]
  - Cardiac failure [Fatal]
  - Loss of consciousness [Recovering/Resolving]
  - Vomiting [Unknown]
  - Blood creatinine increased [Unknown]
  - Neutropenia [Unknown]
  - Seizure [Recovered/Resolved]

NARRATIVE: CASE EVENT DATE: 201711
